FAERS Safety Report 10308240 (Version 2)
Quarter: 2014Q3

REPORT INFORMATION
  Report Type: Spontaneous
  Country: FR (occurrence: FR)
  Receive Date: 20140716
  Receipt Date: 20140806
  Transmission Date: 20150326
  Serious: Yes (Hospitalization)
  Sender: FDA-Public Use
  Company Number: FR-SA-2014SA089055

PATIENT
  Age: 57 Year
  Sex: Female

DRUGS (8)
  1. TARGOCID [Concomitant]
     Active Substance: TEICOPLANIN
     Route: 042
     Dates: start: 20140608
  2. VANCOMYCIN HYDROCHLORIDE. [Suspect]
     Active Substance: VANCOMYCIN HYDROCHLORIDE
     Indication: SEPSIS
     Route: 042
     Dates: start: 20140605, end: 20140608
  3. RIFADINE [Suspect]
     Active Substance: RIFAMPIN
     Indication: SEPSIS
     Route: 048
     Dates: start: 20140523, end: 20140614
  4. STAGID [Concomitant]
     Active Substance: METFORMIN PAMOATE
  5. CEFOTAXIME [Concomitant]
     Active Substance: CEFOTAXIME\CEFOTAXIME SODIUM
     Route: 042
     Dates: start: 201406, end: 20140610
  6. KARDEGIC [Concomitant]
     Active Substance: ASPIRIN LYSINE
  7. PIPERACILLIN/TAZOBACTAM [Suspect]
     Active Substance: PIPERACILLIN SODIUM\TAZOBACTAM SODIUM
     Indication: SEPSIS
     Route: 042
     Dates: start: 20140605, end: 20140610
  8. GENTAMICIN [Concomitant]
     Active Substance: GENTAMICIN
     Route: 042
     Dates: start: 20140605

REACTIONS (7)
  - Drug reaction with eosinophilia and systemic symptoms [Recovered/Resolved]
  - Pyrexia [Recovering/Resolving]
  - Eosinophilia [Recovering/Resolving]
  - Respiratory distress [Recovering/Resolving]
  - Renal failure acute [Recovering/Resolving]
  - Rash [Recovering/Resolving]
  - Face oedema [Recovering/Resolving]

NARRATIVE: CASE EVENT DATE: 20140610
